FAERS Safety Report 17283693 (Version 1)
Quarter: 2020Q1

REPORT INFORMATION
  Report Type: Spontaneous
  Country: GB (occurrence: GB)
  Receive Date: 20200117
  Receipt Date: 20200117
  Transmission Date: 20200409
  Serious: Yes (Life-Threatening)
  Sender: FDA-Public Use
  Company Number: GB-PFIZER INC-2020018017

PATIENT
  Age: 74 Year
  Sex: Male

DRUGS (5)
  1. PROPOFOL. [Suspect]
     Active Substance: PROPOFOL
     Dosage: UNK
     Route: 042
     Dates: start: 20191201, end: 20191201
  2. REMIFENTANIL [Suspect]
     Active Substance: REMIFENTANIL
     Indication: GENERAL ANAESTHESIA
     Dosage: UNK
     Route: 042
     Dates: start: 20191201, end: 20191201
  3. ROCURONIUM BROMIDE. [Suspect]
     Active Substance: ROCURONIUM BROMIDE
     Dosage: UNK
  4. CO-AMOXICLAVE [Suspect]
     Active Substance: AMOXICILLIN\CLAVULANATE POTASSIUM
     Indication: ANTIBIOTIC PROPHYLAXIS
     Dosage: 1.2 G, UNK
     Route: 042
     Dates: start: 20191201, end: 20191201
  5. METARAMINOL [Suspect]
     Active Substance: METARAMINOL
     Dosage: UNK

REACTIONS (2)
  - Bradycardia [Recovering/Resolving]
  - Cardiac arrest [Recovering/Resolving]

NARRATIVE: CASE EVENT DATE: 20191201
